FAERS Safety Report 7574254-7 (Version None)
Quarter: 2011Q2

REPORT INFORMATION
  Report Type: 
  Country: None (occurrence: None)
  Receive Date: 20110627
  Receipt Date: 20110614
  Transmission Date: 20111010
  Serious: Yes (Other)
  Sender: FDA-Public Use
  Company Number: JP-ROCHE-784509

PATIENT
  Sex: Male
  Weight: 59.8 kg

DRUGS (49)
  1. BEVACIZUMAB [Suspect]
     Route: 041
     Dates: start: 20101029, end: 20101029
  2. BEVACIZUMAB [Suspect]
     Route: 041
     Dates: start: 20110513, end: 20110513
  3. CAPECITABINE [Suspect]
     Dosage: IT IS ONE ADMINISTERING WEEKLY HOLIDAY MEDICINE FOR TWO WEEKS.
     Route: 048
     Dates: start: 20101029, end: 20101112
  4. CAPECITABINE [Suspect]
     Dosage: IT IS ONE ADMINISTERING WEEKLY HOLIDAY MEDICINE FOR TWO WEEKS.
     Route: 048
     Dates: start: 20101210, end: 20101224
  5. BEVACIZUMAB [Suspect]
     Route: 041
     Dates: start: 20101119, end: 20101119
  6. BEVACIZUMAB [Suspect]
     Route: 041
     Dates: start: 20110128, end: 20110128
  7. CAPECITABINE [Suspect]
     Indication: COLON CANCER METASTATIC
     Dosage: IT IS ONE ADMINISTERING WEEKLY HOLIDAY MEDICINE FOR TWO WEEKS
     Route: 048
     Dates: start: 20100708, end: 20100722
  8. CAPECITABINE [Suspect]
     Dosage: IT IS ONE ADMINISTERING WEEKLY HOLIDAY MEDICINE FOR TWO WEEKS.
     Route: 048
     Dates: start: 20110218, end: 20110304
  9. CAPECITABINE [Suspect]
     Dosage: IT IS ONE ADMINISTERING WEEKLY HOLIDAY MEDICINE FOR TWO WEEKS.
     Route: 048
     Dates: start: 20110401, end: 20110415
  10. OXALIPLATIN [Suspect]
     Route: 041
     Dates: start: 20101008, end: 20101008
  11. OXALIPLATIN [Suspect]
     Route: 041
     Dates: start: 20101210, end: 20101210
  12. FAMOTIDINE [Concomitant]
     Route: 048
     Dates: start: 20100708
  13. APREPITANT [Concomitant]
     Route: 054
     Dates: start: 20100708, end: 20101210
  14. GRANISETRON [Concomitant]
     Route: 048
     Dates: start: 20100708, end: 20101211
  15. BEVACIZUMAB [Suspect]
     Indication: COLON CANCER METASTATIC
     Route: 041
     Dates: start: 20100708, end: 20100708
  16. CAPECITABINE [Suspect]
     Dosage: IT IS ONE ADMINISTERING WEEKLY HOLIDAY MEDICINE FOR TWO WEEKS.
     Route: 048
     Dates: start: 20100803, end: 20100820
  17. CAPECITABINE [Suspect]
     Dosage: IT IS ONE ADMINISTERING WEEKLY HOLIDAY MEDICINE FOR TWO WEEKS.
     Route: 048
     Dates: start: 20110128, end: 20110211
  18. OXALIPLATIN [Suspect]
     Indication: COLON CANCER METASTATIC
     Route: 041
     Dates: start: 20100708, end: 20100708
  19. VITAMIN A [Concomitant]
     Dosage: DOSAGE IS UNCERTAIN. DRUG NAME REPORTED AS SAHNE(VITAMIN A OIL).
     Route: 061
     Dates: start: 20100708
  20. WHITE PETROLATUM [Concomitant]
     Route: 061
     Dates: start: 20100708
  21. HEPARIN [Concomitant]
     Route: 061
     Dates: start: 20100708
  22. CHLORPHENIRAMINE MALEATE [Concomitant]
     Route: 041
     Dates: start: 20100708, end: 20101210
  23. BEVACIZUMAB [Suspect]
     Route: 041
     Dates: start: 20110311, end: 20110311
  24. BEVACIZUMAB [Suspect]
     Route: 041
     Dates: start: 20110401, end: 20110401
  25. CAPECITABINE [Suspect]
     Dosage: IT IS ONE ADMINISTERING WEEKLY HOLIDAY MEDICINE FOR TWO WEEKS.
     Route: 048
     Dates: start: 20100827, end: 20100910
  26. OXALIPLATIN [Suspect]
     Route: 041
     Dates: start: 20100917, end: 20100917
  27. BEVACIZUMAB [Suspect]
     Route: 041
     Dates: start: 20110107, end: 20110107
  28. APREPITANT [Concomitant]
     Dosage: D2-3.
     Route: 054
     Dates: start: 20100709, end: 20101212
  29. DEXAMETHASONE [Concomitant]
     Route: 048
     Dates: start: 20100709, end: 20101212
  30. CAPECITABINE [Suspect]
     Dosage: IT IS ONE ADMINISTERING WEEKLY HOLIDAY MEDICINE FOR TWO WEEKS.
     Route: 048
     Dates: start: 20110422, end: 20110506
  31. OXALIPLATIN [Suspect]
     Route: 041
     Dates: start: 20101029, end: 20101029
  32. BEVACIZUMAB [Suspect]
     Route: 041
     Dates: start: 20100827, end: 20100827
  33. CAPECITABINE [Suspect]
     Dosage: IT IS ONE ADMINISTERING WEEKLY HOLIDAY MEDICINE FOR TWO WEEKS.
     Route: 048
     Dates: start: 20100917, end: 20101001
  34. CAPECITABINE [Suspect]
     Dosage: IT IS ONE ADMINISTERING WEEKLY HOLIDAY MEDICINE FOR TWO WEEKS.
     Route: 048
     Dates: start: 20110107, end: 20110121
  35. CAPECITABINE [Suspect]
     Dosage: IT IS ONE ADMINISTERING WEEKLY HOLIDAY MEDICINE FOR TWO WEEKS.
     Route: 048
     Dates: start: 20110311, end: 20110325
  36. CAPECITABINE [Suspect]
     Dosage: IT IS ONE ADMINISTERING WEEKLY HOLIDAY MEDICINE FOR TWO WEEKS.
     Route: 048
     Dates: start: 20110513, end: 20110527
  37. OXALIPLATIN [Suspect]
     Route: 041
     Dates: start: 20100806, end: 20100806
  38. OXALIPLATIN [Suspect]
     Route: 041
     Dates: start: 20100827, end: 20100827
  39. DEXAMETHASONE SODIUM PHOSPHATE [Concomitant]
     Route: 042
     Dates: start: 20100708, end: 20101210
  40. BEVACIZUMAB [Suspect]
     Route: 041
     Dates: start: 20100917, end: 20100917
  41. BEVACIZUMAB [Suspect]
     Route: 041
     Dates: start: 20101008, end: 20101008
  42. BEVACIZUMAB [Suspect]
     Route: 041
     Dates: start: 20101210, end: 20101210
  43. BEVACIZUMAB [Suspect]
     Route: 041
     Dates: start: 20110218, end: 20110218
  44. BEVACIZUMAB [Suspect]
     Route: 041
     Dates: start: 20110422, end: 20110422
  45. CAPECITABINE [Suspect]
     Dosage: IT IS ONE ADMINISTERING WEEKLY HOLIDAY MEDICINE FOR TWO WEEKS.
     Route: 048
     Dates: start: 20101008, end: 20101022
  46. CAPECITABINE [Suspect]
     Dosage: IT IS ONE ADMINISTERING WEEKLY HOLIDAY MEDICINE FOR TWO WEEKS.
     Route: 048
     Dates: start: 20101119, end: 20101203
  47. OXALIPLATIN [Suspect]
     Route: 041
     Dates: start: 20101119, end: 20101119
  48. LOPERAMIDE HYDROCHLORIDE [Concomitant]
     Route: 048
  49. GRANISETRON [Concomitant]
     Dosage: DOSE FORM INJECTABLE.
     Route: 048
     Dates: start: 20100708, end: 20101210

REACTIONS (7)
  - FATIGUE [None]
  - DIARRHOEA [None]
  - NEUROPATHY PERIPHERAL [None]
  - NAUSEA [None]
  - DYSGEUSIA [None]
  - PALMAR-PLANTAR ERYTHRODYSAESTHESIA SYNDROME [None]
  - IMPAIRED HEALING [None]
